FAERS Safety Report 6555898-8 (Version None)
Quarter: 2010Q1

REPORT INFORMATION
  Report Type: 
  Country: None (occurrence: None)
  Receive Date: 20100128
  Receipt Date: 20100115
  Transmission Date: 20100710
  Serious: Yes (Other)
  Sender: FDA-Public Use
  Company Number: JP-ROCHE-681830

PATIENT
  Sex: Male
  Weight: 57 kg

DRUGS (16)
  1. TOCILIZUMAB [Suspect]
     Indication: RHEUMATOID ARTHRITIS
     Route: 041
     Dates: start: 20090324, end: 20090324
  2. TOCILIZUMAB [Suspect]
     Route: 041
     Dates: start: 20090421, end: 20090421
  3. TOCILIZUMAB [Suspect]
     Route: 041
     Dates: start: 20090519, end: 20090519
  4. TOCILIZUMAB [Suspect]
     Route: 041
     Dates: start: 20090616, end: 20090616
  5. TOCILIZUMAB [Suspect]
     Route: 041
     Dates: start: 20090714, end: 20090714
  6. TOCILIZUMAB [Suspect]
     Route: 041
     Dates: start: 20090811, end: 20090811
  7. TOCILIZUMAB [Suspect]
     Route: 041
     Dates: start: 20090908
  8. PREDNISOLONE [Suspect]
     Indication: RHEUMATOID ARTHRITIS
     Route: 048
  9. BUCILLAMINE [Concomitant]
     Dosage: DRUG: BRIMANI (BUCILLAMINE)
     Route: 048
  10. NEOISCOTIN [Concomitant]
     Route: 054
     Dates: start: 20090310
  11. ETODOLAC [Concomitant]
     Dosage: RUG: RAIPECK (ETODOLAC)
     Route: 048
  12. EXCELASE [Concomitant]
     Route: 048
  13. MINOCYCLINE HCL [Concomitant]
     Route: 048
  14. PYRIDOXAL PHOSPHATE [Concomitant]
     Dosage: DRUG NAME: UNKKNOWN DRUG (PYRIDOXAL PHOSPHATE).
     Route: 048
  15. BAKTAR [Concomitant]
     Route: 048
  16. ACTONEL [Concomitant]
     Route: 048

REACTIONS (2)
  - HYPERLIPIDAEMIA [None]
  - TRANSIENT ISCHAEMIC ATTACK [None]
